FAERS Safety Report 10450637 (Version 1)
Quarter: 2014Q3

REPORT INFORMATION
  Report Type: Spontaneous
  Country: BR (occurrence: BR)
  Receive Date: 20140912
  Receipt Date: 20140912
  Transmission Date: 20150326
  Serious: Yes (Other)
  Sender: FDA-Public Use
  Company Number: BR-SA-2013SA126220

PATIENT
  Age: 35 Year
  Sex: Female
  Weight: 72 kg

DRUGS (1)
  1. CLEXANE [Suspect]
     Active Substance: ENOXAPARIN SODIUM
     Indication: HYPERCOAGULATION
     Dosage: ROUTE: VIA SYRINGE
     Dates: start: 20131203

REACTIONS (2)
  - Abortion [Unknown]
  - Exposure during pregnancy [Unknown]

NARRATIVE: CASE EVENT DATE: 201312
